FAERS Safety Report 23545558 (Version 1)
Quarter: 2024Q1

REPORT INFORMATION
  Report Type: Spontaneous
  Country: JP (occurrence: JP)
  Receive Date: 20240220
  Receipt Date: 20240220
  Transmission Date: 20240409
  Serious: Yes (Other)
  Sender: FDA-Public Use
  Company Number: JP-BRISTOL-MYERS SQUIBB COMPANY-2024-026725

PATIENT
  Age: 68 Year

DRUGS (5)
  1. NIVOLUMAB [Suspect]
     Active Substance: NIVOLUMAB
     Indication: Gastric cancer
     Dosage: RELATIVE DOSE INTENSITY : NIVOLUMAB 45 %.
  2. FLUOROURACIL [Concomitant]
     Active Substance: FLUOROURACIL
     Indication: Gastric cancer
     Dosage: RELATIVE DOSE INTENSITY OF 5-FU  (CONTINUOUS INFUSION) 84.3 %
     Route: 042
  3. FLUOROURACIL [Concomitant]
     Active Substance: FLUOROURACIL
     Dosage: RELATIVE DOSE INTENSITY OF 5-FU (BOLUS)
     Route: 040
  4. OXALIPLATIN [Concomitant]
     Active Substance: OXALIPLATIN
     Indication: Gastric cancer
     Dosage: RELATIVE DOSE INTENSITY OF L-OHP (OXALIPLATIN)  31%
     Route: 042
  5. LEUCOVORIN [Concomitant]
     Active Substance: LEUCOVORIN\LEUCOVORIN CALCIUM
     Indication: Gastric cancer
     Route: 042

REACTIONS (1)
  - Erythema multiforme [Recovering/Resolving]
